FAERS Safety Report 24395716 (Version 1)
Quarter: 2024Q4

REPORT INFORMATION
  Report Type: Report from Study
  Country: IT (occurrence: IT)
  Receive Date: 20241004
  Receipt Date: 20241004
  Transmission Date: 20250115
  Serious: Yes (Other)
  Sender: AUROBINDO
  Company Number: IT-AUROBINDO-AUR-APL-2024-047388

PATIENT
  Age: 61 Year
  Sex: Male

DRUGS (5)
  1. ZOLEDRONIC ACID [Suspect]
     Active Substance: ZOLEDRONIC ACID
     Indication: Advanced systemic mastocytosis
     Dosage: UNK
     Route: 065
     Dates: start: 202105, end: 202106
  2. HYDROXYUREA [Suspect]
     Active Substance: HYDROXYUREA
     Indication: Advanced systemic mastocytosis
     Dosage: 500 MILLIGRAM
     Route: 065
  3. PREDNISONE [Suspect]
     Active Substance: PREDNISONE
     Indication: Advanced systemic mastocytosis
     Dosage: 25 MILLIGRAM, DAILY
     Route: 065
  4. MIDOSTAURIN [Suspect]
     Active Substance: MIDOSTAURIN
     Indication: Cytoreductive surgery
     Dosage: 50 MILLIGRAM, TWO TIMES A DAY
     Route: 065
     Dates: start: 202107, end: 202109
  5. MIDOSTAURIN [Suspect]
     Active Substance: MIDOSTAURIN
     Indication: Advanced systemic mastocytosis

REACTIONS (1)
  - Drug ineffective [Unknown]
